FAERS Safety Report 8906811 (Version 3)
Quarter: 2016Q1

REPORT INFORMATION
  Report Type: Spontaneous
  Country: GB (occurrence: GB)
  Receive Date: 20121114
  Receipt Date: 20160206
  Transmission Date: 20160526
  Serious: Yes (Death, Other)
  Sender: FDA-Public Use
  Company Number: GB-AMGEN-GBRSP2012071865

PATIENT
  Age: 1 Day
  Sex: Male
  Weight: .69 kg

DRUGS (8)
  1. FRAGMIN [Concomitant]
     Active Substance: DALTEPARIN SODIUM
     Indication: DIALYSIS
     Dosage: 5000 IU, QD
     Route: 064
     Dates: start: 20120716
  2. FUROSEMIDE. [Concomitant]
     Active Substance: FUROSEMIDE
     Dosage: 20 MG, QD
     Route: 064
  3. LABETALOL [Concomitant]
     Active Substance: LABETALOL\LABETALOL HYDROCHLORIDE
     Dosage: 200 MG, BID
     Route: 064
  4. ARANESP [Suspect]
     Active Substance: DARBEPOETIN ALFA
     Indication: PRODUCT USED FOR UNKNOWN INDICATION
     Dosage: 120 MUG, QWK
     Route: 064
     Dates: start: 20120730
  5. VENOFER [Concomitant]
     Active Substance: IRON SUCROSE
     Dosage: 100 MG, 2 TIMES/WK
     Route: 064
     Dates: start: 20120903
  6. CLONAZEPAM. [Concomitant]
     Active Substance: CLONAZEPAM
     Dosage: 0.5 MG, QD
     Route: 064
  7. RENAGEL [Concomitant]
     Active Substance: SEVELAMER HYDROCHLORIDE
     Dosage: 800 MG, TID
     Route: 064
  8. ALFACALCIDOL [Concomitant]
     Active Substance: ALFACALCIDOL
     Dosage: 1.25 MUG, QD
     Route: 064
     Dates: start: 201201

REACTIONS (3)
  - Low birth weight baby [Unknown]
  - Premature baby [Fatal]
  - Death neonatal [Fatal]

NARRATIVE: CASE EVENT DATE: 20121030
